FAERS Safety Report 16995357 (Version 2)
Quarter: 2019Q4

REPORT INFORMATION
  Report Type: Spontaneous
  Country: FR (occurrence: FR)
  Receive Date: 20191105
  Receipt Date: 20191127
  Transmission Date: 20200122
  Serious: Yes (Death, Life-Threatening, Hospitalization)
  Sender: FDA-Public Use
  Company Number: FR-MYLANLABS-2019M1104443

PATIENT
  Age: 67 Year
  Sex: Male
  Weight: 57 kg

DRUGS (13)
  1. FOLINIC ACID [Suspect]
     Active Substance: LEUCOVORIN
     Dosage: UNK
     Route: 065
     Dates: start: 20190416, end: 20190416
  2. IRINOTECAN [Suspect]
     Active Substance: IRINOTECAN
     Dosage: 280 MG, UNK
     Route: 042
     Dates: start: 20190415, end: 20190415
  3. FLUOROURACIL. [Suspect]
     Active Substance: FLUOROURACIL
     Dosage: 3250 MG, UNK
     Route: 042
     Dates: start: 20190415
  4. FLUOROURACIL. [Suspect]
     Active Substance: FLUOROURACIL
     Dosage: 3250 MG, UNK
     Route: 042
     Dates: start: 20190416
  5. ZALTRAP [Suspect]
     Active Substance: ZIV-AFLIBERCEPT
     Dosage: MG/KG, UNK, 4MG/KG (237MG)
     Route: 042
     Dates: start: 20190415, end: 20190415
  6. FOLINIC ACID [Suspect]
     Active Substance: LEUCOVORIN
     Dosage: UNK
     Route: 065
     Dates: start: 20190415, end: 20190415
  7. ZOPICLONE [Concomitant]
     Active Substance: ZOPICLONE
     Dosage: 7.5 MG, UNK
  8. FOLINIC ACID [Suspect]
     Active Substance: LEUCOVORIN
     Indication: RECTAL ADENOCARCINOMA
     Dosage: UNK
  9. IRINOTECAN [Suspect]
     Active Substance: IRINOTECAN
     Dosage: 280 MG, UNK
     Route: 042
     Dates: start: 20190416, end: 20190416
  10. FLUOROURACIL. [Suspect]
     Active Substance: FLUOROURACIL
     Indication: RECTAL ADENOCARCINOMA
     Dosage: UNK
  11. ZALTRAP [Suspect]
     Active Substance: ZIV-AFLIBERCEPT
     Indication: RECTAL ADENOCARCINOMA
     Dosage: UNK
  12. IRINOTECAN [Suspect]
     Active Substance: IRINOTECAN
     Indication: RECTAL ADENOCARCINOMA
     Dosage: UNK
  13. ZALTRAP [Suspect]
     Active Substance: ZIV-AFLIBERCEPT
     Dosage: MG/KG, UNK, 4MG/KG (237MG)
     Route: 042
     Dates: start: 20190416, end: 20190416

REACTIONS (3)
  - Acute coronary syndrome [Recovered/Resolved]
  - Completed suicide [Fatal]
  - Infarction [Recovered/Resolved]

NARRATIVE: CASE EVENT DATE: 20190418
